FAERS Safety Report 8102817-9 (Version None)
Quarter: 2012Q1

REPORT INFORMATION
  Report Type: 
  Country: None (occurrence: None)
  Receive Date: 20120127
  Receipt Date: 20120119
  Transmission Date: 20120608
  Serious: Yes (Hospitalization)
  Sender: FDA-Public Use
  Company Number: 2012SP003463

PATIENT
  Age: 68 Year
  Sex: Male
  Weight: 67 kg

DRUGS (6)
  1. TEMODAL [Suspect]
     Indication: GLIOSARCOMA
     Dosage: 75 MG/M2; QD;PO ; 150 MG/M2;PO ; 150 MG/M2; QD;PO
     Route: 048
     Dates: start: 20070326, end: 20081102
  2. TEMODAL [Suspect]
     Indication: GLIOSARCOMA
     Dosage: 75 MG/M2; QD;PO ; 150 MG/M2;PO ; 150 MG/M2; QD;PO
     Route: 048
     Dates: start: 20081126, end: 20081130
  3. TEMODAL [Suspect]
     Indication: GLIOSARCOMA
     Dosage: 75 MG/M2; QD;PO ; 150 MG/M2;PO ; 150 MG/M2; QD;PO
     Route: 048
     Dates: start: 20070117, end: 20070227
  4. LANSOPRAZOLE [Concomitant]
  5. DEPAKENE [Concomitant]
  6. ONDANSETRON HCL [Concomitant]

REACTIONS (1)
  - EPILEPSY [None]
